FAERS Safety Report 8694986 (Version 3)
Quarter: 2012Q4

REPORT INFORMATION
  Report Type: 
  Country: MX (occurrence: MX)
  Receive Date: 20120731
  Receipt Date: 20120925
  Transmission Date: 20130627
  Serious: Yes (Other)
  Sender: FDA-Public Use
  Company Number: MX-ABBOTT-12P-107-0961341-00

PATIENT
  Age: 55 None
  Sex: Female
  Weight: 70 kg

DRUGS (1)
  1. HUMIRA 40 MG/ 0.8 ML PRE-FILLED SYRINGE [Suspect]
     Indication: ANKYLOSING SPONDYLITIS
     Dosage: Intradermic
     Route: 050
     Dates: start: 20120327

REACTIONS (1)
  - Visual impairment [Not Recovered/Not Resolved]
